FAERS Safety Report 7071933-5 (Version None)
Quarter: 2010Q4

REPORT INFORMATION
  Report Type: 
  Country: None (occurrence: None)
  Receive Date: 20101029
  Receipt Date: 20091105
  Transmission Date: 20110411
  Serious: No
  Sender: FDA-Public Use
  Company Number: A0815381A

PATIENT
  Age: 70 Year
  Sex: Male

DRUGS (6)
  1. ADVAIR DISKUS 100/50 [Suspect]
     Indication: CHRONIC OBSTRUCTIVE PULMONARY DISEASE
     Dosage: 1PUFF PER DAY
     Route: 055
     Dates: start: 20090201, end: 20091001
  2. ADVAIR DISKUS 100/50 [Suspect]
     Dosage: 1PUFF TWICE PER DAY
     Route: 055
     Dates: start: 20091001
  3. VITAMIN E [Concomitant]
  4. FISH OIL [Concomitant]
  5. CHANTIX [Concomitant]
     Dates: start: 20090901
  6. PROVENTIL [Concomitant]

REACTIONS (2)
  - FAECES PALE [None]
  - MUCOUS STOOLS [None]
